FAERS Safety Report 18778351 (Version 16)
Quarter: 2022Q2

REPORT INFORMATION
  Report Type: Report from Study
  Country: CO (occurrence: CO)
  Receive Date: 20210123
  Receipt Date: 20220630
  Transmission Date: 20220721
  Serious: Yes (Disabling, Other)
  Sender: FDA-Public Use
  Company Number: CO-TAKEDA-CO202032469

PATIENT
  Age: 11 Year
  Sex: Male
  Weight: 50 kg

DRUGS (11)
  1. IDURSULFASE [Suspect]
     Active Substance: IDURSULFASE
     Indication: Mucopolysaccharidosis II
     Dosage: 23 MILLIGRAM, 1/WEEK
     Route: 042
     Dates: start: 20131201
  2. IDURSULFASE [Suspect]
     Active Substance: IDURSULFASE
     Dosage: 25 MILLIGRAM, 1/WEEK
     Route: 042
     Dates: start: 20131201
  3. IDURSULFASE [Suspect]
     Active Substance: IDURSULFASE
     Dosage: 24 MILLIGRAM, 1/WEEK
     Route: 042
     Dates: start: 20131201
  4. IDURSULFASE [Suspect]
     Active Substance: IDURSULFASE
     Dosage: 24 MILLIGRAM
     Route: 042
     Dates: start: 20131201
  5. ATOMOXETINE [Concomitant]
     Active Substance: ATOMOXETINE
     Dosage: 40 MILLIGRAM, QD
     Route: 048
  6. CARBAMAZEPINE [Concomitant]
     Active Substance: CARBAMAZEPINE
     Dosage: 100 MILLIGRAM, QD
     Route: 048
  7. CARBAMAZEPINE [Concomitant]
     Active Substance: CARBAMAZEPINE
     Dosage: 50 MILLIGRAM, QD
     Route: 065
  8. FLUOXETINE [Concomitant]
     Active Substance: FLUOXETINE HYDROCHLORIDE
     Dosage: 8 MILLILITER, 1X/DAY:QD
     Route: 048
  9. FLUOXETINE [Concomitant]
     Active Substance: FLUOXETINE HYDROCHLORIDE
     Dosage: 40 MILLIGRAM, QD
     Route: 065
  10. LEVOTHYROXINE [Concomitant]
     Active Substance: LEVOTHYROXINE
     Dosage: 100 MICROGRAM, QD
     Route: 065
  11. LEVOTHYROXINE [Concomitant]
     Active Substance: LEVOTHYROXINE
     Dosage: 150 MICROGRAM
     Route: 065

REACTIONS (34)
  - General physical health deterioration [Not Recovered/Not Resolved]
  - Anaphylactic reaction [Unknown]
  - Walking disability [Not Recovered/Not Resolved]
  - Nervous system disorder [Not Recovered/Not Resolved]
  - Cerebral disorder [Not Recovered/Not Resolved]
  - Pericardial effusion [Not Recovered/Not Resolved]
  - Cardiac valve thickening [Not Recovered/Not Resolved]
  - Adverse event [Not Recovered/Not Resolved]
  - Urinary retention [Not Recovered/Not Resolved]
  - Weight increased [Unknown]
  - Immune tolerance induction [Unknown]
  - Anxiety [Not Recovered/Not Resolved]
  - Poor venous access [Not Recovered/Not Resolved]
  - Crying [Not Recovered/Not Resolved]
  - Infusion site bruising [Not Recovered/Not Resolved]
  - Pain [Not Recovered/Not Resolved]
  - Irritability [Not Recovered/Not Resolved]
  - Anger [Not Recovered/Not Resolved]
  - Ecchymosis [Not Recovered/Not Resolved]
  - Weight decreased [Not Recovered/Not Resolved]
  - Sensitive skin [Not Recovered/Not Resolved]
  - Somnolence [Not Recovered/Not Resolved]
  - Decreased appetite [Not Recovered/Not Resolved]
  - Screaming [Not Recovered/Not Resolved]
  - Oropharyngeal discomfort [Not Recovered/Not Resolved]
  - Sleep disorder [Not Recovered/Not Resolved]
  - Fatigue [Not Recovered/Not Resolved]
  - Nasal pruritus [Not Recovered/Not Resolved]
  - Ear pruritus [Not Recovered/Not Resolved]
  - Puncture site bruise [Not Recovered/Not Resolved]
  - Hyperkeratosis [Not Recovered/Not Resolved]
  - Incorrect dose administered [Unknown]
  - Product prescribing error [Unknown]
  - Incorrect drug administration rate [Unknown]

NARRATIVE: CASE EVENT DATE: 20200929
